FAERS Safety Report 22050651 (Version 1)
Quarter: 2023Q1

REPORT INFORMATION
  Report Type: Spontaneous
  Country: CN (occurrence: None)
  Receive Date: 20230301
  Receipt Date: 20230301
  Transmission Date: 20230417
  Serious: Yes (Other)
  Sender: FDA-Public Use
  Company Number: CN-ROCHE-3289831

PATIENT
  Age: 40 Year
  Sex: Female

DRUGS (5)
  1. HERCEPTIN [Suspect]
     Active Substance: TRASTUZUMAB
     Indication: Breast cancer
     Dosage: 380 MG (506 MG FIRST DOSE)
     Route: 065
     Dates: start: 20210327
  2. PERJETA [Suspect]
     Active Substance: PERTUZUMAB
     Indication: Breast cancer
     Dosage: 420 MG (840 MG FIRST DOSE)
     Route: 065
     Dates: start: 20210327
  3. KADCYLA [Suspect]
     Active Substance: ADO-TRASTUZUMAB EMTANSINE
     Indication: Breast cancer
     Route: 065
     Dates: start: 20210922
  4. PACLITAXEL [Concomitant]
     Active Substance: PACLITAXEL
     Indication: Breast cancer
     Dates: start: 20210327, end: 20210707
  5. CARBOPLATIN [Concomitant]
     Active Substance: CARBOPLATIN
     Indication: Breast cancer
     Dosage: (690-730 MG)
     Dates: start: 20210327, end: 20210707

REACTIONS (3)
  - Agranulocytosis [Recovering/Resolving]
  - Platelet count decreased [Unknown]
  - Anaemia [Recovering/Resolving]
